FAERS Safety Report 20761037 (Version 1)
Quarter: 2022Q2

REPORT INFORMATION
  Report Type: Spontaneous
  Country: US (occurrence: US)
  Receive Date: 20220428
  Receipt Date: 20220428
  Transmission Date: 20220721
  Serious: No
  Sender: FDA-Public Use
  Company Number: US-APOTEX-2021AP028578

PATIENT
  Age: 92 Year
  Sex: Male

DRUGS (4)
  1. LATANOPROST [Suspect]
     Active Substance: LATANOPROST
     Indication: Corneal disorder
     Dosage: UNK
  2. LATANOPROST [Suspect]
     Active Substance: LATANOPROST
     Indication: Glaucoma
  3. MINOCYCLINE [Concomitant]
     Active Substance: MINOCYCLINE HYDROCHLORIDE
     Indication: Ocular surface disease
     Dosage: 50 MILLIGRAM, BID
     Route: 048
  4. MINOCYCLINE [Concomitant]
     Active Substance: MINOCYCLINE HYDROCHLORIDE
     Indication: Glaucoma

REACTIONS (2)
  - Pigmentation disorder [Not Recovered/Not Resolved]
  - Eye disorder [Not Recovered/Not Resolved]
